FAERS Safety Report 10799350 (Version 1)
Quarter: 2015Q1

REPORT INFORMATION
  Report Type: Report from Study
  Country: US (occurrence: US)
  Receive Date: 20150216
  Receipt Date: 20150216
  Transmission Date: 20150721
  Serious: No
  Sender: FDA-Public Use
  Company Number: US-ABBVIE-14K-163-1242671-00

PATIENT
  Age: 28 Year
  Sex: Female

DRUGS (6)
  1. HUMIRA [Suspect]
     Active Substance: ADALIMUMAB
     Indication: COLITIS ULCERATIVE
     Dates: start: 20140519
  2. PRENATAL VITAMINS [Concomitant]
     Active Substance: VITAMINS
     Indication: PRODUCT USED FOR UNKNOWN INDICATION
  3. FOLIC ACID. [Concomitant]
     Active Substance: FOLIC ACID
     Indication: PRODUCT USED FOR UNKNOWN INDICATION
  4. PENTASA [Concomitant]
     Active Substance: MESALAMINE
     Indication: PRODUCT USED FOR UNKNOWN INDICATION
  5. ZYRTEC [Suspect]
     Active Substance: CETIRIZINE HYDROCHLORIDE
     Indication: SINUSITIS
     Dates: start: 201405
  6. CONTRACEPTIVES [Concomitant]
     Active Substance: UNSPECIFIED INGREDIENT
     Indication: PRODUCT USED FOR UNKNOWN INDICATION
     Dates: start: 20140524, end: 201406

REACTIONS (14)
  - Feeling hot [Not Recovered/Not Resolved]
  - Nasal congestion [Not Recovered/Not Resolved]
  - Sinusitis [Recovered/Resolved]
  - Injection site erythema [Recovered/Resolved]
  - Pain [Not Recovered/Not Resolved]
  - Abdominal pain upper [Unknown]
  - Drug effect incomplete [Unknown]
  - Upper-airway cough syndrome [Not Recovered/Not Resolved]
  - Lymphadenopathy [Not Recovered/Not Resolved]
  - Diarrhoea [Unknown]
  - Fatigue [Not Recovered/Not Resolved]
  - Injection site swelling [Recovered/Resolved]
  - Cough [Not Recovered/Not Resolved]
  - Insomnia [Not Recovered/Not Resolved]

NARRATIVE: CASE EVENT DATE: 2014
